FAERS Safety Report 23738757 (Version 1)
Quarter: 2024Q2

REPORT INFORMATION
  Report Type: Report from Study
  Country: DE (occurrence: DE)
  Receive Date: 20240413
  Receipt Date: 20240413
  Transmission Date: 20240716
  Serious: Yes (Other)
  Sender: FDA-Public Use
  Company Number: DE-ABBVIE-5716645

PATIENT
  Sex: Male

DRUGS (8)
  1. RINVOQ [Suspect]
     Active Substance: UPADACITINIB
     Indication: Rheumatoid arthritis
     Route: 048
     Dates: start: 202203, end: 202205
  2. METHOTREXATE [Concomitant]
     Active Substance: METHOTREXATE
     Indication: Product used for unknown indication
     Dosage: STRENGTH 10 MG?START DATE TEXT: BEFORE 18 JAN 2016?STOP DATE TEXT: BETWEEN 7 JUN 2016 AND 12 JAN ...
  3. METHOTREXATE [Concomitant]
     Active Substance: METHOTREXATE
     Indication: Product used for unknown indication
     Dosage: STRENGTH 5 MG?START DATE TEXT: BETWEEN 7JUN2016 AND 12 JAN 2017?STOP DATE TEXT: BETWEEN 26 JAN 20...
  4. METHOTREXATE [Concomitant]
     Active Substance: METHOTREXATE
     Indication: Product used for unknown indication
     Dosage: STRENGTH 15 MG?START DATE TEXT: BETWEEN 18 JUL 2018 AND 5 FEB 2019?STOP DATE TEXT: BETWEEN 2 JUL ...
  5. XELJANZ [Suspect]
     Active Substance: TOFACITINIB CITRATE
     Indication: Product used for unknown indication
     Dosage: STRENGTH 10 MG
     Route: 065
     Dates: start: 202205
  6. XELJANZ [Suspect]
     Active Substance: TOFACITINIB CITRATE
     Indication: Product used for unknown indication
     Dosage: STRENGTH 5 MG?STOP DATE TEXT: BETWEEN 11 MAR 2021 AND 1 SEP 2021
     Route: 065
     Dates: start: 202003, end: 2021
  7. XELJANZ [Suspect]
     Active Substance: TOFACITINIB CITRATE
     Indication: Product used for unknown indication
     Dosage: STRENGTH 10 MG?START DATE TEXT: BETWEEN 11MAR2021 AND 1SEP2021
     Route: 065
     Dates: start: 2021, end: 202203
  8. HYDROXYCHLOROQUINE [Concomitant]
     Active Substance: HYDROXYCHLOROQUINE
     Indication: Product used for unknown indication

REACTIONS (2)
  - Basal cell carcinoma [Unknown]
  - Cough [Unknown]
